FAERS Safety Report 10367853 (Version 3)
Quarter: 2014Q4

REPORT INFORMATION
  Report Type: Spontaneous
  Country: JP (occurrence: JP)
  Receive Date: 20140807
  Receipt Date: 20141222
  Transmission Date: 20150528
  Serious: Yes (Death, Hospitalization)
  Sender: FDA-Public Use
  Company Number: JP-TEVA-484621ISR

PATIENT
  Age: 84 Year
  Sex: Male
  Weight: 50.8 kg

DRUGS (4)
  1. DORNALIN [Concomitant]
     Active Substance: BERAPROST SODIUM
     Indication: PERIPHERAL ARTERIAL OCCLUSIVE DISEASE
     Dosage: 120 MICROGRAM DAILY;
     Route: 048
     Dates: start: 20140515, end: 20140714
  2. (TS)PRINK INJECTION 5MICROGRAM, INJ, 5MICROGRAM1ML1AMPOULE [Suspect]
     Active Substance: ALPROSTADIL
     Indication: PERIPHERAL ARTERIAL OCCLUSIVE DISEASE
     Dosage: 5 MICROGRAM DAILY;
     Route: 042
     Dates: start: 20140523, end: 20140714
  3. CILOSTAZOL. [Concomitant]
     Active Substance: CILOSTAZOL
     Indication: PERIPHERAL ARTERIAL OCCLUSIVE DISEASE
     Dosage: 200 MILLIGRAM DAILY;
     Route: 048
     Dates: start: 20140515, end: 20140714
  4. ALLOPURINOL. [Concomitant]
     Active Substance: ALLOPURINOL
     Indication: HYPERURICAEMIA
     Dosage: 100 MICROGRAM DAILY;
     Route: 048
     Dates: end: 20140714

REACTIONS (3)
  - Sepsis [Fatal]
  - Flushing [Unknown]
  - Hepatic function abnormal [Not Recovered/Not Resolved]

NARRATIVE: CASE EVENT DATE: 20140529
